FAERS Safety Report 9916577 (Version 5)
Quarter: 2015Q1

REPORT INFORMATION
  Report Type: Spontaneous
  Country: US (occurrence: US)
  Receive Date: 20140221
  Receipt Date: 20150313
  Transmission Date: 20150721
  Serious: Yes (Hospitalization)
  Sender: FDA-Public Use
  Company Number: US-BAYER-2014-025889

PATIENT
  Age: 32 Year
  Sex: Female
  Weight: 68 kg

DRUGS (1)
  1. MIRENA [Suspect]
     Active Substance: LEVONORGESTREL
     Indication: CONTRACEPTION
     Dosage: 20 MCG/24HR, CONT
     Route: 015
     Dates: start: 20110427, end: 20130304

REACTIONS (9)
  - Pregnancy with contraceptive device [None]
  - Injury [None]
  - Emotional distress [None]
  - Flank pain [None]
  - Drug ineffective [None]
  - Back pain [None]
  - Anxiety [None]
  - Uterine perforation [None]
  - Pain [None]

NARRATIVE: CASE EVENT DATE: 201207
